FAERS Safety Report 6081186-2 (Version None)
Quarter: 2009Q1

REPORT INFORMATION
  Report Type: 
  Country: None (occurrence: None)
  Receive Date: 20090213
  Receipt Date: 20090204
  Transmission Date: 20090719
  Serious: Yes (Hospitalization)
  Sender: FDA-Public Use
  Company Number: 1000003923

PATIENT
  Age: 87 Year
  Sex: Male

DRUGS (13)
  1. ESCITALOPRAM [Suspect]
     Dosage: 5 MG (5 MG, 1 IN 1 D), ORAL
     Route: 048
     Dates: start: 20080301, end: 20080319
  2. TOPALGIC (TABLETS) [Suspect]
     Dosage: 200 MG (100 MG, 2 IN 1 D), ORAL
     Route: 048
     Dates: start: 20080229, end: 20080319
  3. ATARAX [Suspect]
     Indication: ANXIETY
     Dosage: (100 MG, AS NEEDED), ORAL
     Route: 048
     Dates: start: 20080317, end: 20080319
  4. INIPOMP [Concomitant]
  5. FUROSEMIDE [Concomitant]
  6. RAMIPRIL [Concomitant]
  7. KARDEGIC [Concomitant]
  8. VASTAREL [Concomitant]
  9. CREON [Concomitant]
  10. ROCALTROL [Concomitant]
  11. ALLOPURINOL [Concomitant]
  12. LANTUS [Concomitant]
  13. DOLIPRANE [Concomitant]

REACTIONS (5)
  - ANXIETY [None]
  - COGNITIVE DISORDER [None]
  - CONFUSIONAL STATE [None]
  - DISORIENTATION [None]
  - URINARY RETENTION [None]
